FAERS Safety Report 10380274 (Version 1)
Quarter: 2014Q3

REPORT INFORMATION
  Report Type: Spontaneous
  Country: US (occurrence: None)
  Receive Date: 20140812
  Receipt Date: 20140812
  Transmission Date: 20150326
  Serious: Yes (Disabling)
  Sender: FDA-Public Use
  Company Number: None

PATIENT
  Age: 80 Year
  Sex: Female
  Weight: 72.58 kg

DRUGS (1)
  1. LOSARTAN [Suspect]
     Active Substance: LOSARTAN
     Indication: HYPERTENSION
     Dosage: 2 AM; 1 PM  TWICE DAILY  TAKEN BY MOUTH
     Route: 048
     Dates: start: 20140530, end: 20140715

REACTIONS (5)
  - Weight increased [None]
  - Drug ineffective [None]
  - Mitral valve disease [None]
  - Blood pressure increased [None]
  - Product quality issue [None]

NARRATIVE: CASE EVENT DATE: 20140530
